FAERS Safety Report 6494596-6 (Version None)
Quarter: 2009Q4

REPORT INFORMATION
  Report Type: 
  Country: None (occurrence: None)
  Receive Date: 20091214
  Receipt Date: 20090306
  Transmission Date: 20100525
  Serious: No
  Sender: FDA-Public Use
  Company Number: US-BRISTOL-MYERS SQUIBB COMPANY-14534531

PATIENT
  Age: 14 Year
  Sex: Male

DRUGS (6)
  1. ABILIFY [Suspect]
     Indication: BIPOLAR DISORDER
  2. ABILIFY [Suspect]
     Indication: TOURETTE'S DISORDER
  3. ORAP [Concomitant]
  4. STRATTERA [Concomitant]
  5. FLONASE [Concomitant]
  6. NASONEX [Concomitant]

REACTIONS (2)
  - DYSPNOEA [None]
  - TIC [None]
